FAERS Safety Report 6763275-X (Version None)
Quarter: 2010Q2

REPORT INFORMATION
  Report Type: 
  Country: None (occurrence: None)
  Receive Date: 20100608
  Receipt Date: 20100608
  Transmission Date: 20101027
  Serious: Yes (Hospitalization)
  Sender: FDA-Public Use
  Company Number: None

PATIENT
  Age: 71 Year
  Sex: Female
  Weight: 64.4108 kg

DRUGS (2)
  1. LOPID [Suspect]
     Indication: HYPERLIPIDAEMIA
     Dosage: 600 MG TWICE DAILY PO
     Route: 048
     Dates: start: 20100522, end: 20100530
  2. LOPID [Suspect]
     Indication: HYPERTRIGLYCERIDAEMIA
     Dosage: 600 MG TWICE DAILY PO
     Route: 048
     Dates: start: 20100522, end: 20100530

REACTIONS (3)
  - DIARRHOEA [None]
  - PANCREATITIS ACUTE [None]
  - WEIGHT DECREASED [None]
